FAERS Safety Report 22611074 (Version 1)
Quarter: 2023Q2

REPORT INFORMATION
  Report Type: Spontaneous
  Country: US (occurrence: None)
  Receive Date: 20230615
  Receipt Date: 20230615
  Transmission Date: 20230722
  Serious: No
  Sender: FDA-Public Use
  Company Number: None

PATIENT
  Sex: Female

DRUGS (6)
  1. KISQALI [Interacting]
     Active Substance: RIBOCICLIB
     Dosage: 3T QD PO 21DON7DOFF?
     Route: 050
  2. AROMASIN [Concomitant]
     Active Substance: EXEMESTANE
  3. FENTANYL [Concomitant]
  4. ONDANSETRON [Concomitant]
  5. PANTOPRAZOLE SODIUM [Concomitant]
     Active Substance: PANTOPRAZOLE SODIUM
  6. SCOPOLAMINE [Concomitant]
     Active Substance: SCOPOLAMINE

REACTIONS (2)
  - Vision blurred [None]
  - Insomnia [None]
